FAERS Safety Report 8518835-2 (Version None)
Quarter: 2012Q3

REPORT INFORMATION
  Report Type: 
  Country: None (occurrence: None)
  Receive Date: 20120718
  Receipt Date: 20120716
  Transmission Date: 20120928
  Serious: Yes (Other)
  Sender: FDA-Public Use
  Company Number: PHFR2012GB003211

PATIENT
  Sex: Male

DRUGS (1)
  1. CLOZARIL [Suspect]
     Indication: SCHIZOPHRENIA
     Dosage: 450 MG
     Route: 048
     Dates: start: 20010701

REACTIONS (5)
  - AGGRESSION [None]
  - INAPPROPRIATE AFFECT [None]
  - DEPRESSED MOOD [None]
  - DISINHIBITION [None]
  - HYPERHIDROSIS [None]
